FAERS Safety Report 7648445-0 (Version None)
Quarter: 2011Q3

REPORT INFORMATION
  Report Type: 
  Country: None (occurrence: None)
  Receive Date: 20110801
  Receipt Date: 20110726
  Transmission Date: 20111222
  Serious: Yes (Hospitalization, Other)
  Sender: FDA-Public Use
  Company Number: JP-B.I. PHARMACEUTICALS,INC./RIDGEFIELD-2011-BP-18576NB

PATIENT
  Age: 75 Year
  Sex: Male

DRUGS (8)
  1. PRADAXA [Suspect]
     Indication: ATRIAL FIBRILLATION
     Dosage: 220 MG
     Route: 048
     Dates: start: 20110711, end: 20110711
  2. DIGOXIN [Concomitant]
     Dosage: 0.25 MG
     Route: 048
  3. LENDORMIN [Concomitant]
     Route: 065
  4. WARFARIN SODIUM [Suspect]
     Indication: ATRIAL FIBRILLATION
     Dosage: 3 MG
     Route: 048
     Dates: start: 20020101, end: 20110709
  5. CATAPRES [Concomitant]
     Dosage: 75 MG
     Route: 048
  6. ENALAPRIL MALEATE [Concomitant]
     Indication: HYPERTENSION
     Dosage: 5 MG
     Route: 048
  7. AMLODIPINE [Concomitant]
     Indication: HYPERTENSION
     Dosage: 5 MG
     Route: 048
  8. LASIX [Concomitant]
     Route: 065

REACTIONS (2)
  - LACUNAR INFARCTION [None]
  - DEHYDRATION [None]
